FAERS Safety Report 24568779 (Version 1)
Quarter: 2024Q4

REPORT INFORMATION
  Report Type: Spontaneous
  Country: US (occurrence: US)
  Receive Date: 20241031
  Receipt Date: 20241031
  Transmission Date: 20250114
  Serious: Yes (Hospitalization)
  Sender: NOVARTIS
  Company Number: US-002147023-NVSC2024US209088

PATIENT
  Sex: Female
  Weight: 84.354 kg

DRUGS (1)
  1. COSENTYX [Suspect]
     Active Substance: SECUKINUMAB
     Indication: Psoriasis
     Dosage: 300 MG, Q4W (EVERY 4)
     Route: 058
     Dates: start: 20210501

REACTIONS (2)
  - Urinary tract infection [Unknown]
  - Escherichia infection [Unknown]
